FAERS Safety Report 10896924 (Version 1)
Quarter: 2015Q1

REPORT INFORMATION
  Report Type: Spontaneous
  Country: US (occurrence: None)
  Receive Date: 20150302
  Receipt Date: 20150302
  Transmission Date: 20150721
  Serious: No
  Sender: FDA-Public Use
  Company Number: None

PATIENT
  Age: 55 Year
  Sex: Male
  Weight: 86.18 kg

DRUGS (5)
  1. FLUTICASONE [Concomitant]
     Active Substance: FLUTICASONE\FLUTICASONE PROPIONATE
  2. L-LYSINE [Concomitant]
     Active Substance: LYSINE
  3. LEVOFLOXAXIN [Suspect]
     Active Substance: LEVOFLOXACIN
     Indication: PROPHYLAXIS
     Dosage: 5 PILLS ONCE DAILY TAKEN BY MOUTH
     Route: 048
     Dates: start: 20150223, end: 20150226
  4. LEVOFLOXAXIN [Suspect]
     Active Substance: LEVOFLOXACIN
     Indication: POST PROCEDURAL INFECTION
     Dosage: 5 PILLS ONCE DAILY TAKEN BY MOUTH
     Route: 048
     Dates: start: 20150223, end: 20150226
  5. OMEGA-3 KRILL OIL [Concomitant]

REACTIONS (8)
  - Hypoaesthesia [None]
  - Confusional state [None]
  - Musculoskeletal pain [None]
  - Asthenia [None]
  - Arthralgia [None]
  - Myalgia [None]
  - Disturbance in attention [None]
  - Tendon pain [None]

NARRATIVE: CASE EVENT DATE: 20150223
